FAERS Safety Report 5529243-0 (Version None)
Quarter: 2007Q4

REPORT INFORMATION
  Report Type: 
  Country: None (occurrence: None)
  Receive Date: 20071129
  Receipt Date: 20070919
  Transmission Date: 20080405
  Serious: Yes (Other)
  Sender: FDA-Public Use
  Company Number: A0670204A

PATIENT
  Sex: Female

DRUGS (1)
  1. BUPROPION HCL [Suspect]
     Indication: MAJOR DEPRESSION
     Dosage: 200MG PER DAY
     Route: 048
     Dates: start: 20070701, end: 20070801

REACTIONS (3)
  - DRUG INEFFECTIVE [None]
  - MAJOR DEPRESSION [None]
  - PHARMACEUTICAL PRODUCT COMPLAINT [None]
